FAERS Safety Report 12171575 (Version 1)
Quarter: 2016Q1

REPORT INFORMATION
  Report Type: Spontaneous
  Country: DK (occurrence: DK)
  Receive Date: 20160311
  Receipt Date: 20160311
  Transmission Date: 20160526
  Serious: Yes (Life-Threatening, Hospitalization)
  Sender: FDA-Public Use
  Company Number: DK-FRESENIUS KABI-FK201601114

PATIENT
  Age: 50 Year
  Sex: Male

DRUGS (6)
  1. IRINOTECAN 20 MG/ML CONCENTRATE FOR SOLUTION FOR INFUSION [Suspect]
     Active Substance: IRINOTECAN
     Indication: COLON CANCER METASTATIC
     Route: 042
     Dates: start: 20160125, end: 20160125
  2. CALCIUM FOLINATE EBEWE [Suspect]
     Active Substance: LEUCOVORIN CALCIUM
     Indication: COLON CANCER METASTATIC
     Route: 042
     Dates: start: 20160125, end: 20160125
  3. TRADOLAN [Concomitant]
     Active Substance: TRAMADOL
     Indication: PAIN
     Dates: start: 201512
  4. FLUOROURACIL HOSPIRA (FLUOROURACIL) (FLUOROURACIL) [Suspect]
     Active Substance: FLUOROURACIL
     Route: 042
     Dates: start: 20160125, end: 20160128
  5. MOVICOL [Concomitant]
     Active Substance: POLYETHYLENE GLYCOL 3350\POTASSIUM CHLORIDE\SODIUM BICARBONATE\SODIUM CHLORIDE
     Indication: CONSTIPATION
  6. FLUOROURACIL HOSPIRA (FLUOROURACIL) (FLUOROURACIL) [Suspect]
     Active Substance: FLUOROURACIL
     Indication: COLON CANCER METASTATIC
     Route: 042
     Dates: start: 20160125, end: 20160128

REACTIONS (4)
  - Cardiac arrest [Recovered/Resolved]
  - Resuscitation [Recovered/Resolved]
  - Ventricular fibrillation [Recovered/Resolved]
  - Arterial spasm [Recovered/Resolved]

NARRATIVE: CASE EVENT DATE: 20160128
